FAERS Safety Report 26104313 (Version 1)
Quarter: 2025Q4

REPORT INFORMATION
  Report Type: Spontaneous
  Country: US (occurrence: US)
  Receive Date: 20251130
  Receipt Date: 20251130
  Transmission Date: 20260118
  Serious: No
  Sender: MERCK SHARP & DOHME LLC
  Company Number: US-009507513-2354616

PATIENT

DRUGS (1)
  1. DIFICID [Suspect]
     Active Substance: FIDAXOMICIN
     Dates: start: 20251125

REACTIONS (2)
  - Anxiety [Unknown]
  - Product storage error [Unknown]

NARRATIVE: CASE EVENT DATE: 20251125
